FAERS Safety Report 25542926 (Version 2)
Quarter: 2025Q3

REPORT INFORMATION
  Report Type: Spontaneous
  Country: US (occurrence: US)
  Receive Date: 20250711
  Receipt Date: 20250906
  Transmission Date: 20251020
  Serious: Yes (Other)
  Sender: ALEXION PHARMACEUTICALS
  Company Number: US-AstraZeneca-CH-00905604AP

PATIENT
  Age: 78 Year
  Sex: Female

DRUGS (1)
  1. LYNPARZA [Suspect]
     Active Substance: OLAPARIB
     Route: 065

REACTIONS (5)
  - Visual impairment [Unknown]
  - Cataract [Unknown]
  - Product dose omission issue [Unknown]
  - Weight decreased [Unknown]
  - Product use issue [Unknown]
